FAERS Safety Report 5963789-6 (Version None)
Quarter: 2008Q4

REPORT INFORMATION
  Report Type: 
  Country: None (occurrence: None)
  Receive Date: 20081121
  Receipt Date: 20081121
  Transmission Date: 20090506
  Serious: Yes (Hospitalization)
  Sender: FDA-Public Use
  Company Number: None

PATIENT
  Age: 54 Year
  Sex: Male

DRUGS (17)
  1. WARFARIN SODIUM [Suspect]
     Indication: PROPHYLAXIS
     Dosage: 3 MG PO QD
     Route: 048
     Dates: start: 20080815, end: 20080817
  2. TACROLIMUS [Concomitant]
  3. PREDNISONE TAB [Concomitant]
  4. PRAVACHOL [Concomitant]
  5. NYSTATIN [Concomitant]
  6. M.V.I. [Concomitant]
  7. METOCLOPRAMIDE [Concomitant]
  8. LEVOTHYROXINE SODIUM [Concomitant]
  9. LEVOFLOXACIN [Concomitant]
  10. LANSOPRAZOLE [Concomitant]
  11. FUROSEMIDE [Concomitant]
  12. FLAGYL [Concomitant]
  13. COLACE [Concomitant]
  14. CELLCEPT [Concomitant]
  15. BACTRIM [Concomitant]
  16. ASPIRIN [Concomitant]
  17. ACYCLOVIR [Concomitant]

REACTIONS (1)
  - INTERNATIONAL NORMALISED RATIO INCREASED [None]
